FAERS Safety Report 6540300-2 (Version None)
Quarter: 2010Q1

REPORT INFORMATION
  Report Type: 
  Country: None (occurrence: None)
  Receive Date: 20100115
  Receipt Date: 20100106
  Transmission Date: 20100710
  Serious: Yes (Hospitalization)
  Sender: FDA-Public Use
  Company Number: FR-ASTRAZENECA-2010SE00815

PATIENT
  Age: 84 Year
  Sex: Female

DRUGS (7)
  1. CANDESARTAN CILEXETIL/HYDROCHLOROTHIAZIDE (ATACAND HCT) [Suspect]
     Dosage: 8 / 12.5 MG, 1 DF DAILY
     Route: 048
     Dates: start: 20070101, end: 20090624
  2. APROVEL [Suspect]
     Route: 048
     Dates: start: 20070730, end: 20091006
  3. ATACAND [Concomitant]
     Route: 048
  4. PLAVIX [Concomitant]
     Route: 065
  5. SOTALEX [Concomitant]
     Route: 065
  6. NEURONTIN [Concomitant]
     Route: 065
  7. TEMESTA [Concomitant]
     Route: 065

REACTIONS (1)
  - ECZEMA [None]
